FAERS Safety Report 5802883-7 (Version None)
Quarter: 2008Q3

REPORT INFORMATION
  Report Type: 
  Country: None (occurrence: None)
  Receive Date: 20080708
  Receipt Date: 20080624
  Transmission Date: 20090109
  Serious: Yes (Hospitalization)
  Sender: FDA-Public Use
  Company Number: GB-GENENTECH-262706

PATIENT
  Sex: Female
  Weight: 68.9 kg

DRUGS (2)
  1. HERCEPTIN [Suspect]
     Indication: BREAST CANCER
     Dosage: 413 MG, Q3W
     Route: 042
     Dates: start: 20071114
  2. TAMOXIFEN CITRATE [Concomitant]
     Indication: BREAST CANCER
     Dates: start: 20070822

REACTIONS (2)
  - CHEST PAIN [None]
  - TROPONIN INCREASED [None]
